FAERS Safety Report 17291887 (Version 1)
Quarter: 2020Q1

REPORT INFORMATION
  Report Type: Spontaneous
  Country: US (occurrence: US)
  Receive Date: 20200118
  Receipt Date: 20200118
  Transmission Date: 20200409
  Serious: Yes (Disabling)
  Sender: FDA-Public Use
  Company Number: None

PATIENT
  Age: 37 Year
  Sex: Female
  Weight: 47.25 kg

DRUGS (2)
  1. BUPRENORPHINE 8MG [Suspect]
     Active Substance: BUPRENORPHINE
     Indication: PAIN
     Dosage: ?          QUANTITY:1 TABLET(S);?
     Route: 060
  2. BUPRENORPHINE 8MG [Suspect]
     Active Substance: BUPRENORPHINE
     Indication: SUBSTANCE ABUSE
     Dosage: ?          QUANTITY:1 TABLET(S);?
     Route: 060

REACTIONS (5)
  - Product quality issue [None]
  - Product complaint [None]
  - Manufacturing materials issue [None]
  - Withdrawal syndrome [None]
  - Product substitution issue [None]

NARRATIVE: CASE EVENT DATE: 20200102
